FAERS Safety Report 20976249 (Version 2)
Quarter: 2022Q3

REPORT INFORMATION
  Report Type: Spontaneous
  Country: US (occurrence: US)
  Receive Date: 20220617
  Receipt Date: 20220824
  Transmission Date: 20221027
  Serious: Yes (Other)
  Sender: FDA-Public Use
  Company Number: US-PFIZER INC-202200397844

PATIENT
  Age: 50 Year
  Sex: Female

DRUGS (3)
  1. XELJANZ XR [Suspect]
     Active Substance: TOFACITINIB CITRATE
     Indication: Rheumatoid arthritis
     Dosage: 11 MG, DAILY
     Route: 048
     Dates: start: 2015
  2. PREDNISONE [Concomitant]
     Active Substance: PREDNISONE
     Dosage: UNK
  3. HYDROXYCHLOROQUINE [Concomitant]
     Active Substance: HYDROXYCHLOROQUINE
     Dosage: UNK

REACTIONS (10)
  - Syncope [Unknown]
  - Hypertension [Unknown]
  - Heart rate increased [Unknown]
  - Palpitations [Unknown]
  - Product dose omission in error [Unknown]
  - Product administration error [Unknown]
  - Oropharyngeal pain [Unknown]
  - Tongue discolouration [Unknown]
  - Glossodynia [Unknown]
  - Chills [Unknown]

NARRATIVE: CASE EVENT DATE: 20220501
